FAERS Safety Report 19613420 (Version 1)
Quarter: 2021Q3

REPORT INFORMATION
  Report Type: Spontaneous
  Country: US (occurrence: US)
  Receive Date: 20210726
  Receipt Date: 20210726
  Transmission Date: 20211014
  Serious: No
  Sender: FDA-Public Use
  Company Number: None

PATIENT
  Age: 60 Year
  Sex: Female

DRUGS (1)
  1. PROLIA [Suspect]
     Active Substance: DENOSUMAB
     Dosage: OTHER FREQUENCY:OTHER?
     Route: 058
     Dates: start: 202012

REACTIONS (2)
  - Asthenia [None]
  - Foot fracture [None]

NARRATIVE: CASE EVENT DATE: 20210626
